FAERS Safety Report 8417689-2 (Version None)
Quarter: 2012Q2

REPORT INFORMATION
  Report Type: 
  Country: None (occurrence: None)
  Receive Date: 20120607
  Receipt Date: 20120529
  Transmission Date: 20120825
  Serious: Yes (Hospitalization, Other)
  Sender: FDA-Public Use
  Company Number: US-ASTRAZENECA-2011SE32265

PATIENT
  Age: 62 Year
  Sex: Female

DRUGS (42)
  1. PROPRANOLOL [Concomitant]
     Dates: start: 20031202
  2. LEVOTHYROXINE SODIUM [Concomitant]
     Indication: HYPOTHYROIDISM
  3. MAXALT [Concomitant]
     Dosage: 10 MG PRN
     Dates: start: 20060127
  4. WELLBUTRIN SR [Concomitant]
     Dates: start: 20050101
  5. NITROGLYCERIN [Concomitant]
     Route: 060
     Dates: start: 20031202
  6. NEXIUM [Suspect]
     Route: 048
     Dates: start: 20010101, end: 20110501
  7. NEXIUM [Suspect]
     Route: 048
     Dates: start: 20031202
  8. VITAMIN D [Concomitant]
     Indication: OSTEOPOROSIS
  9. DITROPAN XL [Concomitant]
     Dates: start: 20031202
  10. ALLEGRA-D 12 HOUR [Concomitant]
     Indication: RHINITIS ALLERGIC
     Dates: start: 20050101
  11. PERIOSTAT [Concomitant]
     Dates: start: 20050101
  12. ACTONEL [Concomitant]
     Dosage: 35 MG PRN T PO Q SATURDAY AM
     Route: 048
  13. NEXIUM [Suspect]
     Route: 048
     Dates: start: 20030701
  14. PEPCID [Concomitant]
     Indication: GASTROOESOPHAGEAL REFLUX DISEASE
     Dates: start: 20110501
  15. BENICAR HCT [Concomitant]
     Dosage: 20/12.5 QD
     Dates: start: 20060127
  16. LOVASTATIN [Concomitant]
     Indication: BLOOD CHOLESTEROL INCREASED
  17. LEXAPRO [Concomitant]
     Indication: DEPRESSION
  18. DITROPAN XL [Concomitant]
     Indication: POLLAKIURIA
     Dates: start: 20050101
  19. MAXALT [Concomitant]
     Indication: MIGRAINE
     Dates: start: 20050101
  20. BENTYL [Concomitant]
     Indication: IRRITABLE BOWEL SYNDROME
     Dates: start: 20050101
  21. NEXIUM [Suspect]
     Indication: GASTROOESOPHAGEAL REFLUX DISEASE
     Dosage: TOOK NEXIUM FOR SEVERAL YEARS
     Route: 048
  22. DAPSONE [Concomitant]
     Indication: VASCULITIS
  23. PREVENTATIVE MAZALT [Concomitant]
     Indication: MIGRAINE
  24. PROPRANOLOL [Concomitant]
     Indication: MIGRAINE
     Dates: start: 20050101
  25. LIPITOR [Concomitant]
     Dates: start: 20050101
  26. LOTREL [Concomitant]
     Indication: HYPERTENSION
     Dosage: 10/20 MG
     Dates: start: 20050101
  27. ACTONEL [Concomitant]
     Dosage: 35 MG WEEKLY
     Dates: start: 20060127
  28. RECLAST [Concomitant]
     Indication: OSTEOPOROSIS
  29. CARBEMAZEPIN [Concomitant]
     Indication: TRIGEMINAL NEURALGIA
  30. CALCIUM [Concomitant]
     Indication: OSTEOPOROSIS
  31. LIPITOR [Concomitant]
     Indication: BLOOD CHOLESTEROL
     Dates: start: 20031202
  32. ACTONEL [Concomitant]
     Dates: start: 20050101
  33. FLORINAL [Concomitant]
     Indication: HYPERTENSION
     Dates: start: 20060127
  34. ASATHIOPRINE [Concomitant]
     Indication: VASCULITIS
  35. ENABLEX [Concomitant]
     Indication: URINARY INCONTINENCE
  36. ALTACE [Concomitant]
     Dates: start: 20031202
  37. BENICAR HCT [Concomitant]
     Indication: HYPERTENSION
  38. ENABLEX [Concomitant]
     Dates: start: 20060127
  39. CRESTOR [Concomitant]
     Dosage: 10
     Dates: start: 20060127
  40. ALLEGRA-D 12 HOUR [Concomitant]
     Dates: start: 20031202
  41. BENTYL [Concomitant]
     Dosage: 20 MG PRN
     Dates: start: 20060127
  42. BEXTRA [Concomitant]
     Dates: start: 20031202

REACTIONS (16)
  - SPINAL COLUMN STENOSIS [None]
  - FEMUR FRACTURE [None]
  - FALL [None]
  - RADIUS FRACTURE [None]
  - LOWER LIMB FRACTURE [None]
  - ULNA FRACTURE [None]
  - OSTEOPOROSIS [None]
  - WRIST FRACTURE [None]
  - OESOPHAGEAL SPASM [None]
  - TIBIA FRACTURE [None]
  - HYPOTHYROIDISM [None]
  - GASTROOESOPHAGEAL REFLUX DISEASE [None]
  - UPPER LIMB FRACTURE [None]
  - SPINAL OSTEOARTHRITIS [None]
  - FOREARM FRACTURE [None]
  - DEPRESSION [None]
